FAERS Safety Report 5512230-6 (Version None)
Quarter: 2007Q4

REPORT INFORMATION
  Report Type: 
  Country: None (occurrence: None)
  Receive Date: 20071108
  Receipt Date: 20071108
  Transmission Date: 20080405
  Serious: Yes (Hospitalization)
  Sender: FDA-Public Use
  Company Number: None

PATIENT
  Age: 95 Year
  Sex: Female
  Weight: 44 kg

DRUGS (11)
  1. LEVOFLOXACIN [Suspect]
     Indication: URINARY TRACT INFECTION
     Dosage: 250 MG PO /DAY
     Route: 048
  2. ATENOLOL [Concomitant]
  3. BISACEDYL [Concomitant]
  4. CALCIUM [Concomitant]
  5. CYANOCOBALAMIN [Concomitant]
  6. MOM [Concomitant]
  7. MULTI-VITAMIN [Concomitant]
  8. NEUTRA PHOS [Concomitant]
  9. PREVACID [Concomitant]
  10. TUSSIN-DM [Concomitant]
  11. TYLENOL [Concomitant]

REACTIONS (1)
  - PRESYNCOPE [None]
